FAERS Safety Report 10155158 (Version 1)
Quarter: 2014Q2

REPORT INFORMATION
  Report Type: Spontaneous
  Country: US (occurrence: US)
  Receive Date: 20140506
  Receipt Date: 20140506
  Transmission Date: 20141212
  Serious: Yes (Death)
  Sender: FDA-Public Use
  Company Number: US-PFIZER INC-2014122711

PATIENT
  Age: 69 Year
  Sex: Male

DRUGS (1)
  1. INLYTA [Suspect]
     Indication: RENAL CANCER
     Dosage: 7 MG 2X/DAY (5 MG - 1 TAB BID, 2 MG - 1 TAB BID = 7 MG BID)
     Dates: start: 20140308

REACTIONS (1)
  - Death [Fatal]
